FAERS Safety Report 6720619-2 (Version None)
Quarter: 2010Q2

REPORT INFORMATION
  Report Type: 
  Country: None (occurrence: None)
  Receive Date: 20100510
  Receipt Date: 20100427
  Transmission Date: 20101027
  Serious: No
  Sender: FDA-Public Use
  Company Number: B0651465B

PATIENT

DRUGS (10)
  1. LABETALOL HCL [Suspect]
     Dosage: TRANSPLACENTARY
     Route: 064
  2. WELLBUTRIN [Suspect]
     Dosage: TRANSPLACENTARY
     Route: 064
  3. DIGOXIN [Suspect]
     Dosage: TRANSPLACENTARY
     Route: 064
  4. SUCCINYLCHOLINE CHLORIDE [Suspect]
     Indication: ANAESTHESIA
     Dosage: 180 MG / TRANSPLACENTARY
     Route: 064
  5. INSULIN [Suspect]
     Dosage: TRANSPLACENTARY
     Route: 064
  6. METHYLDOPA [Suspect]
     Dosage: TRANSPLACENTARY
     Route: 064
  7. MIDAZOLAM (MIDAZOLAM) (FORMULATION UNKNOWN) [Suspect]
     Dosage: 2 MG /  TRANSPLACENTARY
     Route: 064
  8. FENTANYL [Suspect]
     Dosage: 100 MCG / TRANSPLACENTARY
     Route: 064
  9. ETOMIDATE [Suspect]
     Indication: ANAESTHESIA
     Dosage: 30 MG / TRANSPLACENTARY
     Route: 064
  10. DESFLURANE [Suspect]
     Indication: ANAESTHESIA
     Dosage: TRANSPLACENTARY
     Route: 064

REACTIONS (5)
  - APGAR SCORE LOW [None]
  - BRADYCARDIA FOETAL [None]
  - CAESAREAN SECTION [None]
  - MATERNAL DRUGS AFFECTING FOETUS [None]
  - PREMATURE BABY [None]
